FAERS Safety Report 5569424-3 (Version None)
Quarter: 2007Q4

REPORT INFORMATION
  Report Type: 
  Country: None (occurrence: None)
  Receive Date: 20071220
  Receipt Date: 20070705
  Transmission Date: 20080405
  Serious: Yes (Hospitalization, Other)
  Sender: FDA-Public Use
  Company Number: US-ABBOTT-07P-163-0373737-00

PATIENT
  Sex: Male
  Weight: 43 kg

DRUGS (8)
  1. DILAUDID [Suspect]
     Indication: HEADACHE
     Route: 042
     Dates: start: 20070624, end: 20070625
  2. DILAUDID [Suspect]
     Route: 042
     Dates: start: 20070625, end: 20070626
  3. DILAUDID [Suspect]
     Route: 048
     Dates: start: 20070626, end: 20070627
  4. DILAUDID [Suspect]
     Indication: HEADACHE
     Route: 048
  5. KETOROLAC TROMETHAMINE [Concomitant]
     Indication: HEADACHE
     Route: 042
     Dates: start: 20070625, end: 20070630
  6. DIAZEPAM [Concomitant]
     Indication: HEADACHE
     Route: 042
     Dates: start: 20070624, end: 20070701
  7. LIDOCAINE [Concomitant]
     Indication: HEADACHE
     Dates: start: 20070627, end: 20070627
  8. ACETAMINOPHEN [Concomitant]
     Indication: HEADACHE
     Route: 048
     Dates: start: 20070627, end: 20070701

REACTIONS (3)
  - DIPLOPIA [None]
  - HEADACHE [None]
  - INTRACRANIAL PRESSURE INCREASED [None]
